FAERS Safety Report 6001399-5 (Version None)
Quarter: 2008Q4

REPORT INFORMATION
  Report Type: 
  Country: None (occurrence: None)
  Receive Date: 20081215
  Receipt Date: 20081204
  Transmission Date: 20090506
  Serious: Yes (Life-Threatening, Hospitalization, Disabling, Other)
  Sender: FDA-Public Use
  Company Number: DE-ELI_LILLY_AND_COMPANY-DE200807002770

PATIENT
  Sex: Male
  Weight: 91 kg

DRUGS (2)
  1. ZYPREXA [Suspect]
     Indication: SCHIZOPHRENIA
     Dosage: 7.5 MG, DAILY (1/D)
     Route: 048
     Dates: start: 20050701
  2. ZYPREXA [Suspect]
     Dosage: 5 MG, OTHER
     Dates: start: 20080101

REACTIONS (6)
  - ATRIAL FIBRILLATION [None]
  - CEREBRAL INFARCTION [None]
  - DIABETES MELLITUS [None]
  - EMBOLISM [None]
  - HEPATIC STEATOSIS [None]
  - HYPERTENSION [None]
